FAERS Safety Report 24039763 (Version 1)
Quarter: 2024Q3

REPORT INFORMATION
  Report Type: Spontaneous
  Country: ES (occurrence: ES)
  Receive Date: 20240702
  Receipt Date: 20240702
  Transmission Date: 20241017
  Serious: Yes (Other)
  Sender: RANBAXY
  Company Number: ES-SUN PHARMACEUTICAL INDUSTRIES LTD-2024RR-454587

PATIENT
  Age: 36 Year
  Sex: Female
  Weight: 61 kg

DRUGS (3)
  1. ACETAMINOPHEN [Suspect]
     Active Substance: ACETAMINOPHEN
     Indication: Radius fracture
     Dosage: 650 MILLIGRAM
     Route: 048
     Dates: start: 20240125
  2. METAMIZOLE [Suspect]
     Active Substance: METAMIZOLE
     Indication: Radius fracture
     Dosage: UNK
     Route: 065
     Dates: start: 20240125
  3. IBUPROFEN [Suspect]
     Active Substance: IBUPROFEN
     Indication: Radius fracture
     Dosage: UNK
     Route: 065
     Dates: start: 20240125

REACTIONS (2)
  - Urticaria [Unknown]
  - Tongue discomfort [Unknown]

NARRATIVE: CASE EVENT DATE: 20240126
